FAERS Safety Report 6597785-5 (Version None)
Quarter: 2010Q1

REPORT INFORMATION
  Report Type: 
  Country: None (occurrence: None)
  Receive Date: 20100216
  Receipt Date: 20100208
  Transmission Date: 20100710
  Serious: Yes (Death, Hospitalization)
  Sender: FDA-Public Use
  Company Number: WAES 1002USA01407

PATIENT
  Age: 46 Year
  Sex: Male

DRUGS (9)
  1. ISENTRESS [Suspect]
     Indication: HIV INFECTION
     Dosage: /BID/PO
     Route: 048
     Dates: start: 20091218, end: 20100130
  2. BACTRIM [Concomitant]
  3. ELAVIL [Concomitant]
  4. EPZICOM [Concomitant]
  5. NORVIR [Concomitant]
  6. TUSSIONEX (BROMHEXINE HYAROCHLOR [Concomitant]
  7. VALTREX [Concomitant]
  8. DARUNAVIR [Concomitant]
  9. KETOCONAZOLE [Concomitant]

REACTIONS (1)
  - DEPRESSED LEVEL OF CONSCIOUSNESS [None]
